FAERS Safety Report 13748713 (Version 1)
Quarter: 2017Q3

REPORT INFORMATION
  Report Type: Spontaneous
  Country: US (occurrence: US)
  Receive Date: 20170712
  Receipt Date: 20170712
  Transmission Date: 20171127
  Serious: No
  Sender: FDA-Public Use
  Company Number: None

PATIENT
  Age: 60 Year
  Sex: Male

DRUGS (1)
  1. AMPYRA [Suspect]
     Active Substance: DALFAMPRIDINE
     Indication: MULTIPLE SCLEROSIS
     Route: 048
     Dates: start: 20160310

REACTIONS (4)
  - Red blood cell count decreased [None]
  - Haematocrit decreased [None]
  - Full blood count abnormal [None]
  - Haemoglobin decreased [None]

NARRATIVE: CASE EVENT DATE: 20170620
